FAERS Safety Report 5479232-X (Version None)
Quarter: 2007Q4

REPORT INFORMATION
  Report Type: 
  Country: None (occurrence: None)
  Receive Date: 20071008
  Receipt Date: 20071001
  Transmission Date: 20080405
  Serious: Yes (Hospitalization, Other)
  Sender: FDA-Public Use
  Company Number: US-JNJFOC-20060205618

PATIENT
  Sex: Female
  Weight: 115.21 kg

DRUGS (7)
  1. ORTHO EVRA [Suspect]
     Route: 062
  2. ORTHO EVRA [Suspect]
     Indication: CONTRACEPTION
     Route: 062
  3. FLEXERIL [Concomitant]
  4. CELEBREX [Concomitant]
     Indication: ANTIINFLAMMATORY THERAPY
  5. LORCET [Concomitant]
     Indication: PAIN
  6. LEVAQUIN [Concomitant]
  7. NEBULIZER [Concomitant]

REACTIONS (2)
  - DEEP VEIN THROMBOSIS [None]
  - PNEUMONITIS [None]
